FAERS Safety Report 5758307-1 (Version None)
Quarter: 2008Q2

REPORT INFORMATION
  Report Type: 
  Country: None (occurrence: None)
  Receive Date: 20080604
  Receipt Date: 20080522
  Transmission Date: 20081010
  Serious: Yes (Hospitalization, Other)
  Sender: FDA-Public Use
  Company Number: US-BAYER-200813933GPV

PATIENT
  Age: 77 Year
  Sex: Male
  Weight: 77 kg

DRUGS (5)
  1. CAMPATH [Suspect]
     Indication: B-CELL SMALL LYMPHOCYTIC LYMPHOMA
     Dosage: TOTAL DAILY DOSE: 30  MG
     Route: 058
     Dates: start: 20070226, end: 20070518
  2. VALACYCLOVIR [Concomitant]
     Route: 048
     Dates: start: 20070524
  3. COTRIM [Concomitant]
     Route: 048
     Dates: start: 20070228
  4. TRAMADOL HCL [Concomitant]
     Route: 048
     Dates: start: 20071203
  5. ACETAMINOPHEN [Concomitant]
     Route: 048
     Dates: start: 20071203

REACTIONS (2)
  - CHRONIC LYMPHOCYTIC LEUKAEMIA TRANSFORMATION [None]
  - SCIATICA [None]
